FAERS Safety Report 5347424-6 (Version None)
Quarter: 2007Q2

REPORT INFORMATION
  Report Type: 
  Country: None (occurrence: None)
  Receive Date: 20070507
  Receipt Date: 20070102
  Transmission Date: 20071010
  Serious: Yes (Hospitalization)
  Sender: FDA-Public Use
  Company Number: 2485

PATIENT
  Age: 39 Year
  Sex: Male

DRUGS (1)
  1. AVINZA [Suspect]

REACTIONS (1)
  - HEPATIC FUNCTION ABNORMAL [None]
